FAERS Safety Report 11023384 (Version 1)
Quarter: 2015Q2

REPORT INFORMATION
  Report Type: Spontaneous
  Country: US (occurrence: US)
  Receive Date: 20150413
  Receipt Date: 20150413
  Transmission Date: 20150821
  Serious: No
  Sender: FDA-Public Use
  Company Number: US-PFIZER INC-2015121026

PATIENT
  Age: 71 Year
  Sex: Female
  Weight: 58 kg

DRUGS (3)
  1. ESTRACE [Concomitant]
     Active Substance: ESTRADIOL
     Indication: HORMONE REPLACEMENT THERAPY
     Dosage: 10 MG, 3 TO 4 TIMES A WEEK
  2. LYRICA [Suspect]
     Active Substance: PREGABALIN
     Indication: TRIGEMINAL NEURALGIA
     Dosage: 25 MG, 2X/DAY
     Dates: start: 20150401
  3. TOPIRAMATE. [Suspect]
     Active Substance: TOPIRAMATE
     Indication: TRIGEMINAL NEURALGIA
     Dosage: UNK
     Dates: start: 20150325

REACTIONS (2)
  - Weight decreased [Unknown]
  - Lip swelling [Not Recovered/Not Resolved]

NARRATIVE: CASE EVENT DATE: 20150401
